FAERS Safety Report 10821312 (Version 1)
Quarter: 2015Q1

REPORT INFORMATION
  Report Type: Report from Study
  Country: US (occurrence: None)
  Receive Date: 20150213
  Receipt Date: 20150213
  Transmission Date: 20150721
  Serious: Yes (Life-Threatening, Hospitalization)
  Sender: FDA-Public Use
  Company Number: 2014BI113081

PATIENT
  Age: 44 Year
  Sex: Female
  Weight: 62.14 kg

DRUGS (8)
  1. TAPAZOLE [Concomitant]
     Active Substance: METHIMAZOLE
  2. LISINOPRIL. [Concomitant]
     Active Substance: LISINOPRIL
  3. NAPROXEN. [Concomitant]
     Active Substance: NAPROXEN
  4. ATENOLOL. [Concomitant]
     Active Substance: ATENOLOL
  5. ACETAMINOPHEN. [Concomitant]
     Active Substance: ACETAMINOPHEN
  6. BENADRYL [Concomitant]
     Active Substance: DIPHENHYDRAMINE HYDROCHLORIDE
  7. PLEGRIDY [Suspect]
     Active Substance: PEGINTERFERON BETA-1A
     Indication: MULTIPLE SCLEROSIS
     Route: 058
     Dates: start: 20140415
  8. METHIMAZOLE. [Concomitant]
     Active Substance: METHIMAZOLE

REACTIONS (11)
  - Fatigue [None]
  - Myocardial infarction [None]
  - Arteriospasm coronary [None]
  - Sleep disorder [None]
  - Weight decreased [None]
  - Hyperthyroidism [None]
  - Thyrotoxic crisis [None]
  - Exophthalmos [None]
  - Hepatic cyst [None]
  - Tachycardia [None]
  - Hyperglycaemia [None]

NARRATIVE: CASE EVENT DATE: 20141024
